FAERS Safety Report 18448675 (Version 1)
Quarter: 2020Q4

REPORT INFORMATION
  Report Type: Report from Study
  Country: IT (occurrence: IT)
  Receive Date: 20201030
  Receipt Date: 20201030
  Transmission Date: 20210114
  Serious: Yes (Other)
  Sender: FDA-Public Use
  Company Number: IT-PFIZER INC-2020418233

PATIENT

DRUGS (5)
  1. MITOMYCIN C [Suspect]
     Active Substance: MITOMYCIN
     Indication: COLORECTAL CANCER
     Dosage: 30-50 MG/M2, CYCLIC (HIGH DOSE, D 1 AND 75)
     Route: 013
  2. HEPARIN [Concomitant]
     Active Substance: HEPARIN SODIUM
     Indication: PREMEDICATION
     Dosage: 150 U /KG BODY WEIGHT
     Route: 042
  3. EPIRUBICIN HCL [Suspect]
     Active Substance: EPIRUBICIN HYDROCHLORIDE
     Dosage: 20 MG/M2, CYCLIC (HIGH DOSE, D 15-30-45-60)
     Route: 013
  4. 5-FU [Suspect]
     Active Substance: FLUOROURACIL
     Indication: COLORECTAL CANCER
     Dosage: 250 MG/M2, CYCLIC (HIGH DOSE, D 15-30-45-60)
     Route: 013
  5. EPIRUBICIN HCL [Suspect]
     Active Substance: EPIRUBICIN HYDROCHLORIDE
     Indication: COLORECTAL CANCER
     Dosage: 60-90 MG/M2, CYCLIC (HIGH DOSE, D 1 AND 75)
     Route: 013

REACTIONS (1)
  - Biliary tract disorder [Unknown]
